FAERS Safety Report 7449133-6 (Version None)
Quarter: 2011Q2

REPORT INFORMATION
  Report Type: 
  Country: None (occurrence: None)
  Receive Date: 20110502
  Receipt Date: 20110321
  Transmission Date: 20111010
  Serious: Yes (Hospitalization, Other)
  Sender: FDA-Public Use
  Company Number: US-BAYER-2011-025228

PATIENT
  Age: 35 Year
  Sex: Female
  Weight: 60.317 kg

DRUGS (6)
  1. BENICAR [Concomitant]
     Route: 048
  2. YASMIN [Suspect]
     Dosage: UNK
     Dates: end: 20090901
  3. YASMIN [Suspect]
     Route: 048
  4. YAZ [Suspect]
  5. DYAZIDE [Concomitant]
     Route: 048
  6. CLONIDINE [Concomitant]
     Route: 048

REACTIONS (9)
  - ANXIETY [None]
  - CHOLELITHIASIS [None]
  - BILIARY COLIC [None]
  - EMOTIONAL DISTRESS [None]
  - INJURY [None]
  - PAIN [None]
  - GENERAL PHYSICAL HEALTH DETERIORATION [None]
  - DEEP VEIN THROMBOSIS [None]
  - PULMONARY EMBOLISM [None]
